FAERS Safety Report 12538381 (Version 1)
Quarter: 2016Q3

REPORT INFORMATION
  Report Type: Report from Study
  Country: SE (occurrence: SE)
  Receive Date: 20160707
  Receipt Date: 20160707
  Transmission Date: 20161109
  Serious: Yes (Hospitalization, Other)
  Sender: FDA-Public Use
  Company Number: SE-009507513-1401SWE005677

PATIENT
  Age: 19 Year
  Sex: Female
  Weight: 54 kg

DRUGS (9)
  1. TIMOTHY GRASS POLLEN ALLERGEN EXTRACT [Suspect]
     Active Substance: PHLEUM PRATENSE POLLEN
     Indication: CONJUNCTIVITIS ALLERGIC
  2. PREDNISOLONE. [Concomitant]
     Active Substance: PREDNISOLONE
     Dosage: 45 MG, QAM
  3. TIMOTHY GRASS POLLEN ALLERGEN EXTRACT [Suspect]
     Active Substance: PHLEUM PRATENSE POLLEN
     Indication: ASTHMA
     Dosage: 75000 SQ-T, QD
     Route: 060
     Dates: start: 20080228, end: 20080506
  4. SINGULAIR [Concomitant]
     Active Substance: MONTELUKAST SODIUM
     Dosage: 10 MG, QAM
  5. SYMBICORT [Concomitant]
     Active Substance: BUDESONIDE\FORMOTEROL FUMARATE DIHYDRATE
     Dosage: UNK UNK, BID
     Route: 055
     Dates: start: 20080503
  6. TIMOTHY GRASS POLLEN ALLERGEN EXTRACT [Suspect]
     Active Substance: PHLEUM PRATENSE POLLEN
     Indication: RHINITIS ALLERGIC
  7. RHINOCORT AQUA [Concomitant]
     Active Substance: BUDESONIDE
     Dosage: 64 MICROGRAM, QAM
     Route: 045
  8. LEVAXIN [Concomitant]
     Active Substance: LEVOTHYROXINE SODIUM
     Dosage: 100 MICROGRAM, QAM
     Dates: start: 20080503
  9. THEO-DUR [Concomitant]
     Active Substance: THEOPHYLLINE ANHYDROUS
     Dosage: 300 MG, BID
     Dates: start: 20080503

REACTIONS (8)
  - Cough [Recovered/Resolved]
  - Anaphylactic reaction [Recovered/Resolved]
  - Asthma [Recovered/Resolved]
  - Oral pruritus [Recovered/Resolved]
  - Obstructive airways disorder [Recovered/Resolved]
  - Tachycardia [Recovered/Resolved]
  - Urticaria [Recovered/Resolved]
  - Forced expiratory volume decreased [Recovered/Resolved]

NARRATIVE: CASE EVENT DATE: 20080228
